FAERS Safety Report 25739613 (Version 2)
Quarter: 2025Q3

REPORT INFORMATION
  Report Type: Report from Study
  Country: EU (occurrence: EU)
  Receive Date: 20250829
  Receipt Date: 20250919
  Transmission Date: 20251021
  Serious: Yes (Other)
  Sender: ABBVIE
  Company Number: EU-ABBVIE-6427530

PATIENT
  Age: 69 Year
  Sex: Female
  Weight: 108 kg

DRUGS (26)
  1. RISANKIZUMAB [Suspect]
     Active Substance: RISANKIZUMAB
     Indication: Crohn^s disease
     Route: 058
     Dates: start: 20241213
  2. RISANKIZUMAB [Suspect]
     Active Substance: RISANKIZUMAB
     Indication: Crohn^s disease
     Route: 042
     Dates: start: 20240902, end: 20240902
  3. RISANKIZUMAB [Suspect]
     Active Substance: RISANKIZUMAB
     Indication: Crohn^s disease
     Route: 042
     Dates: start: 20241009, end: 20241009
  4. RISANKIZUMAB [Suspect]
     Active Substance: RISANKIZUMAB
     Indication: Crohn^s disease
     Route: 042
     Dates: start: 20241106, end: 20241106
  5. APIXABAN [Concomitant]
     Active Substance: APIXABAN
     Indication: Anticoagulant therapy
     Route: 048
     Dates: start: 2017
  6. BIMATOPROSTA [Concomitant]
     Indication: Intraocular pressure test
     Route: 050
     Dates: start: 2014
  7. DORZOLAMIDE [Concomitant]
     Active Substance: DORZOLAMIDE
     Indication: Intraocular pressure test
     Route: 050
     Dates: start: 2014
  8. ESOMEPRAZONE [Concomitant]
     Indication: Prophylaxis
     Route: 048
     Dates: start: 1994
  9. INSULIN NOS [Concomitant]
     Active Substance: INSULIN NOS
     Indication: Diabetes mellitus
     Route: 058
     Dates: start: 2008
  10. LEVOTHYROXINE [Concomitant]
     Active Substance: LEVOTHYROXINE
     Indication: Thyroid disorder
     Route: 048
     Dates: start: 1994
  11. MAGNESIUM [Concomitant]
     Active Substance: MAGNESIUM
     Indication: Magnesium deficiency
     Route: 048
  12. NEBIVOLOL [Concomitant]
     Active Substance: NEBIVOLOL
     Indication: Blood pressure management
     Route: 048
     Dates: start: 2004
  13. PREGABALIN [Concomitant]
     Active Substance: PREGABALIN
     Indication: Anxiety disorder
     Route: 050
     Dates: start: 2022
  14. RAMIPRIL [Concomitant]
     Active Substance: RAMIPRIL
     Indication: Blood pressure management
     Route: 048
     Dates: start: 2004
  15. SPIRONOLACTONE [Concomitant]
     Active Substance: SPIRONOLACTONE
     Indication: Blood pressure management
     Route: 048
     Dates: start: 2016
  16. CHOLECALCIFEROL [Concomitant]
     Active Substance: CHOLECALCIFEROL
     Indication: Vitamin D deficiency
     Route: 048
     Dates: start: 1999
  17. EVOLOCUMAB [Concomitant]
     Active Substance: EVOLOCUMAB
     Indication: Blood cholesterol increased
     Route: 058
     Dates: start: 1999
  18. IPRATROPIUMBROMIDE [Concomitant]
     Indication: Asthma
     Route: 055
     Dates: start: 1996
  19. CYCLOSPORINE [Concomitant]
     Active Substance: CYCLOSPORINE
     Indication: Eye disorder
     Route: 050
     Dates: start: 2014
  20. METAMIZOL [Concomitant]
     Active Substance: METAMIZOLE SODIUM
     Indication: Pain
     Route: 048
     Dates: start: 2019
  21. SPIRONOLACTON + FUROSEMID [Concomitant]
     Indication: Oedema
     Dosage: DOSE- 100/20 MG
     Route: 048
     Dates: start: 20241030
  22. DELTA9-TETRAHYDROCANNABINOL ACID [Concomitant]
     Indication: Pharyngeal disorder
     Route: 048
     Dates: start: 2024
  23. TIRZEPATIDE [Concomitant]
     Active Substance: TIRZEPATIDE
     Indication: Diabetes mellitus
     Route: 058
     Dates: start: 202503
  24. IMATINIB [Concomitant]
     Active Substance: IMATINIB
     Indication: Leukaemia
     Route: 048
     Dates: start: 20250703
  25. ONDANSETRON [Concomitant]
     Active Substance: ONDANSETRON
     Indication: Nausea
     Route: 048
     Dates: start: 202507
  26. DIMETHICONE [Concomitant]
     Active Substance: DIMETHICONE
     Indication: Flatulence
     Route: 048
     Dates: start: 20250811

REACTIONS (1)
  - Pancreatitis acute [Not Recovered/Not Resolved]

NARRATIVE: CASE EVENT DATE: 20250811
